FAERS Safety Report 9137725 (Version 3)
Quarter: 2013Q2

REPORT INFORMATION
  Report Type: Spontaneous
  Country: US (occurrence: US)
  Receive Date: 20130304
  Receipt Date: 20130418
  Transmission Date: 20140414
  Serious: Yes (Death, Hospitalization)
  Sender: FDA-Public Use
  Company Number: US-ALEXION-A201300316

PATIENT
  Age: 78 Year
  Sex: Male
  Weight: 81.18 kg

DRUGS (39)
  1. SOLIRIS 300MG [Suspect]
     Indication: PAROXYSMAL NOCTURNAL HAEMOGLOBINURIA
     Dosage: 600 MG, QW
     Route: 042
     Dates: start: 20071219, end: 20080116
  2. SOLIRIS 300MG [Suspect]
     Dosage: 900 MG, Q2W
     Route: 042
     Dates: start: 20080116, end: 20130124
  3. ZOCOR [Concomitant]
     Indication: HYPERCHOLESTEROLAEMIA
     Dosage: 10 MG, QD AT BEDTIME
  4. FLOMAX [Concomitant]
     Dosage: 0.8 MG, QD AT BEDTIME
  5. PLAVIX [Concomitant]
     Dosage: 75 MG, QD
  6. ASPIRIN [Concomitant]
     Dosage: 81 MG, QD
  7. COREG [Concomitant]
     Indication: SUPRAVENTRICULAR TACHYCARDIA
     Dosage: 3.125 MG, BID
  8. COREG [Concomitant]
     Indication: ARTERIOSCLEROSIS CORONARY ARTERY
  9. COREG [Concomitant]
     Indication: CARDIOMYOPATHY
  10. COZAAR [Concomitant]
     Dosage: 50 MG, QD
  11. NEXIUM [Concomitant]
     Dosage: 40 MG, QD AT BEDTIME
  12. TYLENOL [Concomitant]
     Dosage: UNK, PRN
  13. AMBIEN [Concomitant]
     Indication: INSOMNIA
     Dosage: UNK, QD
  14. XANAX [Concomitant]
     Dosage: UNK, PRN
  15. ULTRAM [Concomitant]
     Dosage: 50 MG, QD
  16. HUMIRA [Concomitant]
     Dosage: 2 DF, TWICE MONTHLY
  17. COUMADIN [Concomitant]
     Indication: SUPRAVENTRICULAR TACHYCARDIA
     Dosage: 5 MG, QD
     Route: 048
  18. COUMADIN [Concomitant]
     Indication: ARTERIOSCLEROSIS CORONARY ARTERY
  19. ALTACE [Concomitant]
     Indication: SUPRAVENTRICULAR TACHYCARDIA
     Dosage: 2.5 MG, QD
     Route: 048
  20. ALTACE [Concomitant]
     Indication: ARTERIOSCLEROSIS CORONARY ARTERY
  21. ALTACE [Concomitant]
     Indication: CARDIOMYOPATHY
  22. PROPAFENONE HYDROCHLORIDE [Concomitant]
     Indication: SUPRAVENTRICULAR TACHYCARDIA
     Dosage: 150 MG, BID
  23. FUROSEMIDE [Concomitant]
     Indication: CARDIOMYOPATHY
     Dosage: 40 MG, QD
     Route: 048
  24. ALDACTONE [Concomitant]
     Indication: CARDIOMYOPATHY
     Dosage: 12.5 MG, QD
     Route: 048
  25. DIGOXIN [Concomitant]
     Indication: CARDIOMYOPATHY
     Dosage: 0.125 MG, QD NONE ON MONDAY OR FRIDAY
  26. PROSCAR [Concomitant]
     Dosage: 5 MG, QD AT BEDTIME
  27. ALLOPURINOL [Concomitant]
     Dosage: 100 MG, QD
  28. PREDNISONE [Concomitant]
     Dosage: 5 MG, TID
  29. GLUCOPHAGE [Concomitant]
     Dosage: 500 MG, BID
     Route: 048
  30. ACTONEL [Concomitant]
     Dosage: 35 MG, QMONTH
  31. FORTAMET [Concomitant]
     Dosage: 500 MG, BID
  32. ATORVASTATIN [Concomitant]
     Dosage: 20 MG, QD
  33. LEVOTHYROXINE [Concomitant]
     Dosage: 25 MEQ, UNK
  34. FLUTICASONE PROPIONATE [Concomitant]
  35. CENTRUM SILVER [Concomitant]
     Dosage: 1 DF, 1 TABLET
     Route: 048
  36. VITAMIN D3 [Concomitant]
     Dosage: 3 DF, 3 TABLETS
     Route: 048
  37. OMEGA 3 [Concomitant]
     Route: 048
  38. CITRUCEL [Concomitant]
     Dosage: 1 DF, 1 TABLET
     Route: 048
  39. COQ10 [Concomitant]
     Dosage: 100 MG, UNK
     Route: 048

REACTIONS (9)
  - Acute myocardial infarction [Fatal]
  - Bradycardia [Fatal]
  - Cardiogenic shock [Fatal]
  - Orthostatic hypotension [Unknown]
  - Fall [Unknown]
  - Fatigue [Not Recovered/Not Resolved]
  - Asthenia [Not Recovered/Not Resolved]
  - Oedema peripheral [Unknown]
  - Pain in extremity [Not Recovered/Not Resolved]
